FAERS Safety Report 23563170 (Version 1)
Quarter: 2024Q1

REPORT INFORMATION
  Report Type: Spontaneous
  Country: US (occurrence: US)
  Receive Date: 20240226
  Receipt Date: 20240226
  Transmission Date: 20240410
  Serious: No
  Sender: FDA-Public Use
  Company Number: US-SA-SAC20240221000719

PATIENT
  Age: 66 Year
  Sex: Male
  Weight: 99.7 kg

DRUGS (1)
  1. DUPIXENT [Suspect]
     Active Substance: DUPILUMAB
     Indication: Dermatitis atopic
     Dosage: 300 MG, QOW
     Route: 058
     Dates: start: 202009

REACTIONS (1)
  - Skin fissures [Recovered/Resolved]

NARRATIVE: CASE EVENT DATE: 20231001
